FAERS Safety Report 7323109-1 (Version None)
Quarter: 2011Q1

REPORT INFORMATION
  Report Type: 
  Country: None (occurrence: None)
  Receive Date: 20110301
  Receipt Date: 20100831
  Transmission Date: 20110831
  Serious: Yes (Other)
  Sender: FDA-Public Use
  Company Number: US-BAYER-201026385NA

PATIENT
  Sex: Female
  Weight: 57 kg

DRUGS (7)
  1. YASMIN [Suspect]
     Indication: ORAL CONTRACEPTION
  2. NSAID'S [Concomitant]
     Indication: ANTIINFLAMMATORY THERAPY
     Dates: start: 19980101
  3. OCELLA [Suspect]
     Indication: PREMENSTRUAL SYNDROME
     Route: 048
     Dates: start: 20080501, end: 20090515
  4. OCELLA [Suspect]
     Indication: ORAL CONTRACEPTION
  5. ANTIBIOTICS [Concomitant]
     Indication: PRODUCT USED FOR UNKNOWN INDICATION
  6. DEPO-PROVERA [Concomitant]
     Indication: CONTRACEPTION
  7. YASMIN [Suspect]
     Indication: PREMENSTRUAL SYNDROME
     Route: 048
     Dates: start: 20080301, end: 20080515

REACTIONS (7)
  - CHOLECYSTITIS CHRONIC [None]
  - SUICIDE ATTEMPT [None]
  - ANXIETY [None]
  - PANCREATITIS [None]
  - CHOLELITHIASIS [None]
  - ABDOMINAL PAIN [None]
  - DEPRESSION [None]
